FAERS Safety Report 11340790 (Version 1)
Quarter: 2015Q3

REPORT INFORMATION
  Report Type: Spontaneous
  Country: JP (occurrence: JP)
  Receive Date: 20150805
  Receipt Date: 20150805
  Transmission Date: 20151125
  Serious: Yes (Hospitalization, Other)
  Sender: FDA-Public Use
  Company Number: JP-SA-2015SA111875

PATIENT
  Age: 54 Year
  Sex: Male
  Weight: 57 kg

DRUGS (29)
  1. ELPLAT [Suspect]
     Active Substance: OXALIPLATIN
     Indication: PANCREATIC CARCINOMA
     Route: 041
     Dates: start: 20140818, end: 20140818
  2. ELPLAT [Suspect]
     Active Substance: OXALIPLATIN
     Indication: PANCREATIC CARCINOMA
     Route: 041
     Dates: start: 20140610, end: 20140610
  3. CAMPTO [Suspect]
     Active Substance: IRINOTECAN
     Indication: PANCREATIC CARCINOMA
     Route: 041
     Dates: start: 20140929, end: 20140929
  4. ELPLAT [Suspect]
     Active Substance: OXALIPLATIN
     Indication: PANCREATIC CARCINOMA
     Route: 041
     Dates: start: 20140522, end: 20140522
  5. ELPLAT [Suspect]
     Active Substance: OXALIPLATIN
     Indication: PANCREATIC CARCINOMA
     Route: 041
     Dates: start: 20140610, end: 20140610
  6. ELPLAT [Suspect]
     Active Substance: OXALIPLATIN
     Indication: PANCREATIC CARCINOMA
     Route: 041
     Dates: start: 20141020, end: 20141020
  7. CAMPTO [Suspect]
     Active Substance: IRINOTECAN
     Indication: PANCREATIC CARCINOMA
     Route: 041
     Dates: start: 20141020, end: 20141020
  8. ELPLAT [Suspect]
     Active Substance: OXALIPLATIN
     Indication: PANCREATIC CARCINOMA
     Route: 041
     Dates: start: 20140722, end: 20140722
  9. CAMPTO [Suspect]
     Active Substance: IRINOTECAN
     Indication: PANCREATIC CARCINOMA
     Route: 041
     Dates: start: 20140722, end: 20140722
  10. LEVOFOLINATE [Suspect]
     Active Substance: LEVOLEUCOVORIN CALCIUM
     Indication: PANCREATIC CARCINOMA
     Dosage: FORM:INFUSION SOLUTION
     Route: 041
     Dates: start: 20140929, end: 20140929
  11. LEVOFOLINATE [Suspect]
     Active Substance: LEVOLEUCOVORIN CALCIUM
     Indication: PANCREATIC CARCINOMA
     Dosage: FORM:INFUSION SOLUTION
     Route: 041
     Dates: start: 20141020, end: 20141020
  12. ELPLAT [Suspect]
     Active Substance: OXALIPLATIN
     Indication: PANCREATIC CARCINOMA
     Route: 041
     Dates: start: 20140722, end: 20140722
  13. ELPLAT [Suspect]
     Active Substance: OXALIPLATIN
     Indication: PANCREATIC CARCINOMA
     Route: 041
     Dates: start: 20140908, end: 20140908
  14. CAMPTO [Suspect]
     Active Substance: IRINOTECAN
     Indication: PANCREATIC CARCINOMA
     Route: 041
     Dates: start: 20140610, end: 20140610
  15. LEVOFOLINATE [Suspect]
     Active Substance: LEVOLEUCOVORIN CALCIUM
     Indication: PANCREATIC CARCINOMA
     Dosage: FORM:INFUSION SOLUTION
     Route: 041
     Dates: start: 20140522, end: 20140522
  16. LEVOFOLINATE [Suspect]
     Active Substance: LEVOLEUCOVORIN CALCIUM
     Indication: PANCREATIC CARCINOMA
     Dosage: FORM:INFUSION SOLUTION
     Route: 041
     Dates: start: 20140908, end: 20140908
  17. 5-FU [Concomitant]
     Active Substance: FLUOROURACIL
     Dates: start: 20140522, end: 20140522
  18. 5-FU [Concomitant]
     Active Substance: FLUOROURACIL
     Dates: start: 20140818, end: 20140818
  19. 5-FU [Concomitant]
     Active Substance: FLUOROURACIL
     Dates: start: 20141110, end: 20141110
  20. CAMPTO [Suspect]
     Active Substance: IRINOTECAN
     Indication: PANCREATIC CARCINOMA
     Route: 041
     Dates: start: 20141110, end: 20141110
  21. LEVOFOLINATE [Suspect]
     Active Substance: LEVOLEUCOVORIN CALCIUM
     Indication: PANCREATIC CARCINOMA
     Dosage: FORM:INFUSION SOLUTION
     Route: 041
     Dates: start: 20140610, end: 20140610
  22. LEVOFOLINATE [Suspect]
     Active Substance: LEVOLEUCOVORIN CALCIUM
     Indication: PANCREATIC CARCINOMA
     Dosage: FORM:INFUSION SOLUTION
     Route: 041
     Dates: start: 20140818, end: 20140818
  23. LEVOFOLINATE [Suspect]
     Active Substance: LEVOLEUCOVORIN CALCIUM
     Indication: PANCREATIC CARCINOMA
     Dosage: FORM:INFUSION SOLUTION
     Route: 041
     Dates: start: 20141110, end: 20141110
  24. ELPLAT [Suspect]
     Active Substance: OXALIPLATIN
     Indication: PANCREATIC CARCINOMA
     Route: 041
     Dates: start: 20140929, end: 20140929
  25. ELPLAT [Suspect]
     Active Substance: OXALIPLATIN
     Indication: PANCREATIC CARCINOMA
     Route: 041
     Dates: start: 20141110, end: 20141110
  26. CAMPTO [Suspect]
     Active Substance: IRINOTECAN
     Indication: PANCREATIC CARCINOMA
     Route: 041
     Dates: start: 20140522, end: 20140522
  27. CAMPTO [Suspect]
     Active Substance: IRINOTECAN
     Indication: PANCREATIC CARCINOMA
     Route: 041
     Dates: start: 20140818, end: 20140818
  28. CAMPTO [Suspect]
     Active Substance: IRINOTECAN
     Indication: PANCREATIC CARCINOMA
     Route: 041
     Dates: start: 20140908, end: 20140908
  29. LEVOFOLINATE [Suspect]
     Active Substance: LEVOLEUCOVORIN CALCIUM
     Indication: PANCREATIC CARCINOMA
     Dosage: FORM:INFUSION SOLUTION
     Route: 041
     Dates: start: 20140722, end: 20140722

REACTIONS (17)
  - Duodenal stenosis [Unknown]
  - Diarrhoea [Unknown]
  - Biliary tract infection [Unknown]
  - White blood cell count decreased [Unknown]
  - Fatigue [Unknown]
  - Neutrophil count decreased [Unknown]
  - Blood bilirubin increased [Unknown]
  - Decreased appetite [Unknown]
  - Peripheral sensory neuropathy [Unknown]
  - Pyrexia [Unknown]
  - Nausea [Unknown]
  - Febrile neutropenia [Unknown]
  - Haemoglobin decreased [Unknown]
  - Anal fistula [Unknown]
  - Aspartate aminotransferase increased [Unknown]
  - Enteritis infectious [Unknown]
  - Vomiting [Unknown]

NARRATIVE: CASE EVENT DATE: 20150603
